FAERS Safety Report 10257889 (Version 2)
Quarter: 2014Q3

REPORT INFORMATION
  Report Type: Report from Study
  Country: CO (occurrence: CO)
  Receive Date: 20140625
  Receipt Date: 20140919
  Transmission Date: 20150326
  Serious: Yes (Other)
  Sender: FDA-Public Use
  Company Number: CO-BRISTOL-MYERS SQUIBB COMPANY-21028436

PATIENT
  Age: 66 Year
  Sex: Male

DRUGS (8)
  1. LOSARTAN [Concomitant]
     Active Substance: LOSARTAN
  2. OMEGA [Concomitant]
  3. ABATACEPT SUBQ INJECTION 125MG/ML [Suspect]
     Active Substance: ABATACEPT
     Indication: RHEUMATOID ARTHRITIS
     Route: 058
  4. ATORVASTATIN [Concomitant]
     Active Substance: ATORVASTATIN
  5. HUMIRA [Concomitant]
     Active Substance: ADALIMUMAB
  6. INSULIN GLARGINE [Concomitant]
     Active Substance: INSULIN GLARGINE
  7. PREDNISOLONE. [Concomitant]
     Active Substance: PREDNISOLONE
  8. CIMZIA [Concomitant]
     Active Substance: CERTOLIZUMAB PEGOL

REACTIONS (7)
  - Injection site pruritus [Recovering/Resolving]
  - Injection site erythema [Recovering/Resolving]
  - Systemic lupus erythematosus [Unknown]
  - Eye disorder [Unknown]
  - Injection site inflammation [Recovering/Resolving]
  - Injection site warmth [Recovering/Resolving]
  - Injection site reaction [Recovering/Resolving]

NARRATIVE: CASE EVENT DATE: 20140605
